FAERS Safety Report 20734783 (Version 1)
Quarter: 2022Q2

REPORT INFORMATION
  Report Type: Spontaneous
  Country: US (occurrence: None)
  Receive Date: 20220420
  Receipt Date: 20220420
  Transmission Date: 20220721
  Serious: Yes (Disabling)
  Sender: FDA-Public Use
  Company Number: None

PATIENT
  Age: 39 Year
  Sex: Male
  Weight: 130.5 kg

DRUGS (1)
  1. CHLORAPREP SINGLE SWABSTICK [Suspect]
     Active Substance: CHLORHEXIDINE GLUCONATE\ISOPROPYL ALCOHOL
     Indication: Transfusion
     Dosage: FREQUENCY : AS NEEDED;?
     Route: 061

REACTIONS (3)
  - Rash pruritic [None]
  - Urticaria [None]
  - Drug eruption [None]

NARRATIVE: CASE EVENT DATE: 20210713
